FAERS Safety Report 4983266-9 (Version None)
Quarter: 2006Q2

REPORT INFORMATION
  Report Type: 
  Country: None (occurrence: None)
  Receive Date: 20060426
  Receipt Date: 20060420
  Transmission Date: 20061013
  Serious: Yes (Hospitalization)
  Sender: FDA-Public Use
  Company Number: 2006AP01862

PATIENT
  Age: 17166 Day
  Sex: Female

DRUGS (8)
  1. IRESSA [Suspect]
     Indication: BREAST CANCER
     Route: 048
     Dates: start: 20060410
  2. EPIRUBICIN [Suspect]
     Indication: BREAST CANCER
     Route: 042
     Dates: start: 20060410, end: 20060410
  3. CYCLOPHOSPHAMIDE [Suspect]
     Indication: BREAST CANCER
     Route: 042
     Dates: start: 20060410, end: 20060410
  4. SELOZOK [Concomitant]
     Indication: ATRIAL FIBRILLATION
     Route: 048
     Dates: start: 20060331
  5. ZOFRAN [Concomitant]
     Indication: ANTIEMETIC SUPPORTIVE CARE
     Route: 048
     Dates: start: 20060410, end: 20060411
  6. PREDNISOLONE [Concomitant]
     Indication: ANTIEMETIC SUPPORTIVE CARE
     Dates: start: 20060410, end: 20060412
  7. VOGALENE [Concomitant]
     Route: 048
     Dates: start: 20060410
  8. TAFIL [Concomitant]
     Indication: ANTIEMETIC SUPPORTIVE CARE
     Route: 048
     Dates: start: 20060410

REACTIONS (1)
  - PYREXIA [None]
